FAERS Safety Report 8102938-0 (Version None)
Quarter: 2012Q1

REPORT INFORMATION
  Report Type: 
  Country: None (occurrence: None)
  Receive Date: 20120201
  Receipt Date: 20120125
  Transmission Date: 20120608
  Serious: Yes (Death)
  Sender: FDA-Public Use
  Company Number: US-CELGENEUS-163-21880-12012660

PATIENT
  Age: 77 Year
  Sex: Male

DRUGS (9)
  1. ONDANSETRON [Concomitant]
     Route: 065
  2. OMEPRAZOLE [Concomitant]
     Route: 065
  3. REVLIMID [Suspect]
     Indication: MULTIPLE MYELOMA
     Dosage: 10 MILLIGRAM
     Route: 048
     Dates: start: 20110201, end: 20110601
  4. DOCUSATE [Concomitant]
     Route: 065
  5. DEXAMETHASONE [Concomitant]
     Route: 065
  6. HYDREA [Concomitant]
     Indication: MYELOPROLIFERATIVE DISORDER
     Route: 065
  7. WARFARIN SODIUM [Concomitant]
     Route: 065
  8. SENNA-MINT WAF [Concomitant]
     Route: 065
  9. PHYTONADIONE [Concomitant]
     Route: 065

REACTIONS (2)
  - ASTHENIA [None]
  - DEATH [None]
